FAERS Safety Report 17176644 (Version 1)
Quarter: 2019Q4

REPORT INFORMATION
  Report Type: Report from Study
  Country: US (occurrence: US)
  Receive Date: 20191219
  Receipt Date: 20191219
  Transmission Date: 20200122
  Serious: Yes (Other)
  Sender: FDA-Public Use
  Company Number: US-ROCHE-2497302

PATIENT
  Sex: Female

DRUGS (2)
  1. XOLAIR [Suspect]
     Active Substance: OMALIZUMAB
     Indication: ASTHMA
  2. XOLAIR [Suspect]
     Active Substance: OMALIZUMAB
     Indication: ASTHMA
     Dosage: DATE OF SERVICE; 06/JUN/2018, AMOUNT INFUSED: 300 MG?DATE OF SERVICE; 17/APR/2018, AMOUNT INFUSED: 3
     Route: 065

REACTIONS (1)
  - Bronchitis [Recovered/Resolved]
